FAERS Safety Report 8364267-X (Version None)
Quarter: 2012Q2

REPORT INFORMATION
  Report Type: 
  Country: None (occurrence: None)
  Receive Date: 20120516
  Receipt Date: 20120510
  Transmission Date: 20120825
  Serious: Yes (Hospitalization)
  Sender: FDA-Public Use
  Company Number: US-BAYER-2012-002820

PATIENT
  Age: 23 Year
  Sex: Female
  Weight: 110 kg

DRUGS (10)
  1. DILAUDID [Concomitant]
     Indication: PAIN IN EXTREMITY
  2. NEOCON [Concomitant]
  3. VITAMIN B-12 [Concomitant]
     Dosage: UNK UNK, QD
  4. DESOGESTREL AND ETHINYL ESTRADIOL [Concomitant]
  5. YAZ [Suspect]
     Dosage: UNK
     Dates: start: 20090701, end: 20090801
  6. AMOXICILLIN [Concomitant]
     Dosage: 875 MG, UNK
  7. PERCOCET [Concomitant]
     Indication: PAIN
     Dosage: 5/325 MG 2TABS EVERY 4 HOURS AS NEEDED
  8. SENOKOT [Concomitant]
     Dosage: 8.6 MG, QD
  9. FERROUS SULFATE TAB [Concomitant]
     Dosage: 325 MG, TID
  10. MULTI-VITAMIN [Concomitant]

REACTIONS (5)
  - PULMONARY EMBOLISM [None]
  - PAIN [None]
  - MENTAL DISORDER [None]
  - INJURY [None]
  - DEEP VEIN THROMBOSIS [None]
